FAERS Safety Report 15952119 (Version 2)
Quarter: 2019Q1

REPORT INFORMATION
  Report Type: Spontaneous
  Country: US (occurrence: US)
  Receive Date: 20190211
  Receipt Date: 20190213
  Transmission Date: 20190417
  Serious: Yes (Other)
  Sender: FDA-Public Use
  Company Number: US-PFIZER INC-2019055975

PATIENT
  Age: 72 Year
  Sex: Male

DRUGS (16)
  1. METHOTREXATE SODIUM. [Suspect]
     Active Substance: METHOTREXATE SODIUM
     Dosage: UNK, CYCLIC (TEN CYCLES)
     Route: 042
  2. CCNU [Suspect]
     Active Substance: LOMUSTINE
     Dosage: UNK, CYCLIC (TEN CYCLES)
     Route: 048
  3. HEXAMETHYLMELAMINE [Suspect]
     Active Substance: ALTRETAMINE
     Dosage: UNK, CYCLIC (THIRD CYCLE)
     Route: 048
  4. CISPLATIN. [Suspect]
     Active Substance: CISPLATIN
     Dosage: UNK, CYCLIC (THIRD CYCLE)
     Route: 042
  5. CCNU [Suspect]
     Active Substance: LOMUSTINE
     Indication: SMALL CELL LUNG CANCER
     Dosage: 30 MG/M2, CYCLIC (REPEATED ON A 21-DAY CYCLE, THREE COURSES)
     Route: 048
  6. METHOTREXATE SODIUM. [Suspect]
     Active Substance: METHOTREXATE SODIUM
     Indication: SMALL CELL LUNG CANCER
     Dosage: 30 MG/M2, CYCLIC (REPEATED ON A 21-DAY CYCLE, THREE COURSES)
     Route: 042
  7. DOXORUBICIN HCL [Suspect]
     Active Substance: DOXORUBICIN HYDROCHLORIDE
     Indication: SMALL CELL LUNG CANCER
     Dosage: 35 MG/M2, CYCLIC (REPEATED ON A 21-DAY CYCLE, THREE COURSES)
     Route: 042
  8. CYCLOPHOSPHAMIDE. [Suspect]
     Active Substance: CYCLOPHOSPHAMIDE
     Indication: SMALL CELL LUNG CANCER
     Dosage: 350 MG/M2, CYCLIC (REPEATED ON A 21-DAY CYCLE, THREE COURSES)
     Route: 042
  9. ETOPOSIDE. [Suspect]
     Active Substance: ETOPOSIDE
     Dosage: UNK, CYCLIC (THIRD CYCLE)
     Route: 042
  10. MITOMYCIN C [Suspect]
     Active Substance: MITOMYCIN
     Dosage: UNK, CYCLIC (THIRD CYCLE)
     Route: 042
  11. HEXAMETHYLMELAMINE [Suspect]
     Active Substance: ALTRETAMINE
     Indication: SMALL CELL LUNG CANCER
     Dosage: 100 MG/M2, UNK  (X 14 DAYS, IN CYCLES REPEATED EVERY FOUR WEEKS)
     Route: 048
  12. CYCLOPHOSPHAMIDE. [Suspect]
     Active Substance: CYCLOPHOSPHAMIDE
     Dosage: UNK, CYCLIC (TEN CYCLES)
     Route: 042
  13. CISPLATIN. [Suspect]
     Active Substance: CISPLATIN
     Indication: SMALL CELL LUNG CANCER
     Dosage: 50 MG/M2, DAILY (CYCLES REPEATED EVERY FOUR WEEKS)
     Route: 042
  14. ETOPOSIDE. [Suspect]
     Active Substance: ETOPOSIDE
     Indication: SMALL CELL LUNG CANCER
     Dosage: 100 MG/M2, DAILY (IN CYCLES REPEATED EVERY FOUR WEEKS)
     Route: 042
  15. DOXORUBICIN HCL [Suspect]
     Active Substance: DOXORUBICIN HYDROCHLORIDE
     Dosage: UNK, CYCLIC (TEN CYCLES)
     Route: 042
  16. MITOMYCIN C [Suspect]
     Active Substance: MITOMYCIN
     Indication: SMALL CELL LUNG CANCER
     Dosage: 10 MG/M2, DAILY (IN CYCLES REPEATED EVERY FOUR WEEKS)
     Route: 042

REACTIONS (2)
  - Acute myeloid leukaemia [Unknown]
  - Second primary malignancy [Unknown]
